FAERS Safety Report 7656007-4 (Version None)
Quarter: 2011Q3

REPORT INFORMATION
  Report Type: 
  Country: None (occurrence: None)
  Receive Date: 20110802
  Receipt Date: 20110718
  Transmission Date: 20111222
  Serious: Yes (Other)
  Sender: FDA-Public Use
  Company Number: ES-1187153

PATIENT
  Age: 40 Year
  Sex: Female

DRUGS (1)
  1. CYCLOGYL [Suspect]
     Dosage: OPHTHALMIC
     Route: 047
     Dates: start: 20110602, end: 20110602

REACTIONS (4)
  - NAUSEA [None]
  - VISION BLURRED [None]
  - DIZZINESS [None]
  - HYPERTENSIVE CRISIS [None]
